FAERS Safety Report 14009177 (Version 1)
Quarter: 2017Q3

REPORT INFORMATION
  Report Type: Spontaneous
  Country: US (occurrence: US)
  Receive Date: 20170925
  Receipt Date: 20170925
  Transmission Date: 20171128
  Serious: No
  Sender: FDA-Public Use
  Company Number: PHEH2017US030419

PATIENT
  Sex: Female
  Weight: 53.5 kg

DRUGS (1)
  1. BRIMONIDINE [Suspect]
     Active Substance: BRIMONIDINE TARTRATE
     Indication: RETINAL ARTERY OCCLUSION
     Dosage: 1 DRP, BID
     Route: 047
     Dates: start: 20170908

REACTIONS (1)
  - Eye disorder [Not Recovered/Not Resolved]
